FAERS Safety Report 6170776-4 (Version None)
Quarter: 2009Q2

REPORT INFORMATION
  Report Type: 
  Country: None (occurrence: None)
  Receive Date: 20090427
  Receipt Date: 20090420
  Transmission Date: 20091009
  Serious: Yes (Hospitalization)
  Sender: FDA-Public Use
  Company Number: 2009004191

PATIENT
  Age: 71 Year
  Sex: Female

DRUGS (5)
  1. TREANDA [Suspect]
     Indication: CHRONIC LYMPHOCYTIC LEUKAEMIA
     Dosage: (75 MG/M2), INTRAVENOUS
     Route: 042
     Dates: start: 20090216, end: 20090218
  2. GABAPENTIN [Concomitant]
  3. MECLIZINE [Concomitant]
  4. GLIPIZIDE [Concomitant]
  5. METOPROLOL TARTRATE [Concomitant]

REACTIONS (4)
  - ANAEMIA [None]
  - BLOOD PRODUCT TRANSFUSION DEPENDENT [None]
  - PANCYTOPENIA [None]
  - PNEUMONIA [None]
